FAERS Safety Report 23070331 (Version 1)
Quarter: 2023Q4

REPORT INFORMATION
  Report Type: Spontaneous
  Country: US (occurrence: None)
  Receive Date: 20231016
  Receipt Date: 20231016
  Transmission Date: 20240109
  Serious: Yes (Other)
  Sender: FDA-Public Use
  Company Number: None

PATIENT
  Age: 70 Year
  Sex: Female
  Weight: 73.03 kg

DRUGS (14)
  1. MODAFINIL [Suspect]
     Active Substance: MODAFINIL
     Indication: Depression
     Dosage: FREQUENCY : DAILY;?
     Route: 048
     Dates: start: 20230915, end: 20230918
  2. MODAFINIL [Suspect]
     Active Substance: MODAFINIL
     Indication: Somnolence
  3. INGREZZA [Concomitant]
     Active Substance: VALBENAZINE
  4. CEVIMELINE [Concomitant]
     Active Substance: CEVIMELINE
  5. ESCITALOPRAM [Concomitant]
     Active Substance: ESCITALOPRAM OXALATE
  6. LEVOTHYROXINE [Concomitant]
     Active Substance: LEVOTHYROXINE
  7. LITHIUM CARBONATE [Concomitant]
     Active Substance: LITHIUM CARBONATE
  8. VITAMIN B COMPLEX [Concomitant]
     Active Substance: CYANOCOBALAMIN\DEXPANTHENOL\NIACINAMIDE\PYRIDOXINE HYDROCHLORIDE\RIBOFLAVIN 5^-PHOSPHATE SODIUM\THIA
  9. C [Concomitant]
  10. D [Concomitant]
  11. FLAX OIL [Concomitant]
  12. COD LIVER OIL [Concomitant]
     Active Substance: COD LIVER OIL
  13. TURKEY TAIL MUSHROOMS [Concomitant]
  14. LIONS MANE MUSHROOMS [Concomitant]

REACTIONS (4)
  - Headache [None]
  - Disease recurrence [None]
  - Tardive dyskinesia [None]
  - Refusal of treatment by patient [None]
